FAERS Safety Report 5742400-3 (Version None)
Quarter: 2008Q2

REPORT INFORMATION
  Report Type: 
  Country: None (occurrence: None)
  Receive Date: 20080514
  Receipt Date: 20080514
  Transmission Date: 20081010
  Serious: Yes (Hospitalization)
  Sender: FDA-Public Use
  Company Number: None

PATIENT
  Age: 83 Year
  Sex: Male
  Weight: 82.64 kg

DRUGS (1)
  1. FUROSEMIDE [Suspect]
     Indication: OEDEMA
     Dosage: 40 MG EVERY DAY PO
     Route: 048
     Dates: start: 20080211, end: 20080219

REACTIONS (8)
  - ASTHENIA [None]
  - BLOOD CREATININE INCREASED [None]
  - BLOOD UREA INCREASED [None]
  - DIZZINESS [None]
  - FATIGUE [None]
  - FLUID INTAKE REDUCED [None]
  - HYPOTENSION [None]
  - TACHYCARDIA [None]
